FAERS Safety Report 9649815 (Version 2)
Quarter: 2013Q4

REPORT INFORMATION
  Report Type: Spontaneous
  Country: US (occurrence: US)
  Receive Date: 20131028
  Receipt Date: 20131028
  Transmission Date: 20140711
  Serious: No
  Sender: FDA-Public Use
  Company Number: US-PURDUE-USA-2012-0091654

PATIENT
  Sex: 0

DRUGS (1)
  1. OXYCONTIN TABLETS [Suspect]
     Indication: PAIN
     Dosage: 80 MG, Q12H

REACTIONS (3)
  - Drug effect increased [Recovering/Resolving]
  - Fatigue [Recovering/Resolving]
  - Feeling abnormal [Recovering/Resolving]
